FAERS Safety Report 25930295 (Version 1)
Quarter: 2025Q4

REPORT INFORMATION
  Report Type: Report from Study
  Country: US (occurrence: US)
  Receive Date: 20251016
  Receipt Date: 20251016
  Transmission Date: 20260117
  Serious: Yes (Other)
  Sender: ALEXION PHARMACEUTICALS
  Company Number: US-ASTRAZENECA-202510NAM009712US

PATIENT
  Age: 84 Year
  Sex: Female

DRUGS (2)
  1. STRENSIQ [Suspect]
     Active Substance: ASFOTASE ALFA
     Indication: Phosphorus metabolism disorder
     Dosage: 120 MILLIGRAM,TIW
     Route: 065
  2. STRENSIQ [Suspect]
     Active Substance: ASFOTASE ALFA
     Dosage: 120 MILLIGRAM,TIW
     Route: 065

REACTIONS (15)
  - Nephrocalcinosis [Unknown]
  - Pneumonia [Unknown]
  - Anxiety [Unknown]
  - Depression [Unknown]
  - Poor dental condition [Unknown]
  - Short stature [Unknown]
  - Muscular weakness [Unknown]
  - Fatigue [Unknown]
  - Arthralgia [Unknown]
  - Chondrocalcinosis [Unknown]
  - Fracture [Unknown]
  - Pseudofracture [Unknown]
  - Sleep disorder [Unknown]
  - Bone pain [Unknown]
  - Myalgia [Unknown]
